FAERS Safety Report 24658663 (Version 1)
Quarter: 2024Q4

REPORT INFORMATION
  Report Type: Spontaneous
  Country: US (occurrence: US)
  Receive Date: 20241125
  Receipt Date: 20241125
  Transmission Date: 20250115
  Serious: Yes (Death, Hospitalization, Other)
  Sender: AMGEN
  Company Number: US-AMGEN-USASP2024230566

PATIENT
  Age: 89 Year
  Sex: Female

DRUGS (3)
  1. PREDNISONE [Suspect]
     Active Substance: PREDNISONE
     Indication: Lichenoid keratosis
     Dosage: UNK, TAPER
     Route: 065
  2. ALLOPURINOL [Suspect]
     Active Substance: ALLOPURINOL
     Dosage: UNK
     Route: 065
  3. DIPHENHYDRAMINE [Concomitant]
     Active Substance: DIPHENHYDRAMINE
     Indication: Lichenoid keratosis
     Dosage: UNK UNK, AS NECESSARY

REACTIONS (4)
  - Death [Fatal]
  - Toxic epidermal necrolysis [Unknown]
  - Blood creatinine increased [Unknown]
  - Urine output decreased [Unknown]
